FAERS Safety Report 7201724-3 (Version None)
Quarter: 2010Q4

REPORT INFORMATION
  Report Type: 
  Country: None (occurrence: None)
  Receive Date: 20101229
  Receipt Date: 20101222
  Transmission Date: 20110411
  Serious: Yes (Death)
  Sender: FDA-Public Use
  Company Number: ID-ROCHE-747776

PATIENT
  Age: 4 Year
  Sex: Female

DRUGS (6)
  1. OSELTAMIVIR [Suspect]
     Indication: AVIAN INFLUENZA
     Route: 065
     Dates: start: 20100425, end: 20100428
  2. CEFOTAXIME SODIUM [Concomitant]
     Dates: start: 20100428
  3. ACETAMINOPHEN [Concomitant]
     Dates: start: 20100427, end: 20100428
  4. DIAZEPAM [Concomitant]
  5. CEFTRIAXONE [Concomitant]
     Dates: start: 20100427, end: 20100428
  6. RANITIDINE HCL [Concomitant]
     Dates: start: 20100427, end: 20100428

REACTIONS (1)
  - ACUTE RESPIRATORY DISTRESS SYNDROME [None]
